FAERS Safety Report 15493733 (Version 1)
Quarter: 2018Q4

REPORT INFORMATION
  Report Type: Spontaneous
  Country: US (occurrence: US)
  Receive Date: 20181012
  Receipt Date: 20181012
  Transmission Date: 20190205
  Serious: Yes (Life-Threatening, Hospitalization)
  Sender: FDA-Public Use
  Company Number: None

PATIENT
  Age: 23 Year
  Sex: Female
  Weight: 63.5 kg

DRUGS (4)
  1. EPINEPHRINE INJECTION, USP [Suspect]
     Active Substance: EPINEPHRINE
     Indication: FOOD ALLERGY
  2. SERTRALINE [Concomitant]
     Active Substance: SERTRALINE HYDROCHLORIDE
  3. ALBUTEROL. [Concomitant]
     Active Substance: ALBUTEROL
  4. BUPROPION. [Concomitant]
     Active Substance: BUPROPION

REACTIONS (5)
  - Product quality issue [None]
  - Insurance issue [None]
  - Device malfunction [None]
  - Underdose [None]
  - Anaphylactic shock [None]

NARRATIVE: CASE EVENT DATE: 20181006
